FAERS Safety Report 9257511 (Version 2)
Quarter: 2014Q1

REPORT INFORMATION
  Report Type: Spontaneous
  Country: US (occurrence: US)
  Receive Date: 20121212
  Receipt Date: 20130314
  Transmission Date: 20141002
  Serious: No
  Sender: FDA-Public Use
  Company Number: 1208USA003448

PATIENT
  Age: 54 Year
  Sex: Male
  Weight: 107.9 kg

DRUGS (3)
  1. REBETOL [Suspect]
     Indication: HEPATITIS C
     Dates: start: 20120715
  2. VICTRELIS [Suspect]
     Indication: HEPATITIS C
     Dates: start: 20120809
  3. PEGASYS (PEGINTERFERON ALFA-2A) [Suspect]
     Indication: HEPATITIS C
     Dates: start: 20120715

REACTIONS (11)
  - Feeling hot [None]
  - Nasopharyngitis [None]
  - Influenza like illness [None]
  - Myalgia [None]
  - Bone pain [None]
  - Rash [None]
  - White blood cell count decreased [None]
  - Dysgeusia [None]
  - Pruritus [None]
  - Dysgeusia [None]
  - Metabolic disorder [None]
